FAERS Safety Report 11128817 (Version 1)
Quarter: 2015Q2

REPORT INFORMATION
  Report Type: Report from Study
  Country: FR (occurrence: FR)
  Receive Date: 20150521
  Receipt Date: 20150521
  Transmission Date: 20150821
  Serious: Yes (Hospitalization)
  Sender: FDA-Public Use
  Company Number: FR-GLAXOSMITHKLINE-FR2015GSK069043

PATIENT
  Age: 48 Year
  Sex: Male

DRUGS (7)
  1. KREDEX [Concomitant]
     Active Substance: CARVEDILOL
  2. ODRIK [Concomitant]
     Active Substance: TRANDOLAPRIL
  3. PLAVIX [Concomitant]
     Active Substance: CLOPIDOGREL BISULFATE
  4. PROCORALAN [Concomitant]
     Active Substance: IVABRADINE
  5. OMEGA-3-ACID ETHYL ESTERS. [Suspect]
     Active Substance: OMEGA-3-ACID ETHYL ESTERS
     Indication: ISCHAEMIC HEART DISEASE PROPHYLAXIS
     Dosage: UNK
     Dates: start: 20060801
  6. KARDEGIC [Concomitant]
     Active Substance: ASPIRIN LYSINE
  7. CRESTOR [Concomitant]
     Active Substance: ROSUVASTATIN CALCIUM

REACTIONS (1)
  - Malaise [Unknown]

NARRATIVE: CASE EVENT DATE: 20130711
